FAERS Safety Report 15267314 (Version 3)
Quarter: 2019Q3

REPORT INFORMATION
  Report Type: Spontaneous
  Country: US (occurrence: US)
  Receive Date: 20180811
  Receipt Date: 20190806
  Transmission Date: 20191004
  Serious: No
  Sender: FDA-Public Use
  Company Number: US-VIFOR (INTERNATIONAL) INC.-VIT-2016-01712

PATIENT
  Age: 73 Year
  Sex: Female
  Weight: 107.6 kg

DRUGS (38)
  1. VELTASSA [Suspect]
     Active Substance: PATIROMER
     Indication: HYPERKALAEMIA
     Route: 048
     Dates: start: 20160324
  2. GABAPENTIN. [Concomitant]
     Active Substance: GABAPENTIN
  3. ENDOCET [Concomitant]
     Active Substance: ACETAMINOPHEN\OXYCODONE HYDROCHLORIDE
  4. CARVEDILOL. [Concomitant]
     Active Substance: CARVEDILOL
  5. MAGNESIUM OXIDE. [Concomitant]
     Active Substance: MAGNESIUM OXIDE
  6. BUSPIRONE HYDROCHLORIDE. [Concomitant]
     Active Substance: BUSPIRONE HYDROCHLORIDE
  7. CALCITRATE [Concomitant]
     Active Substance: CALCIUM CITRATE
  8. VITAMIN D3 [Concomitant]
     Active Substance: CHOLECALCIFEROL
  9. TRIAMCINOLONE ACETONIDE. [Concomitant]
     Active Substance: TRIAMCINOLONE ACETONIDE
  10. AZOLE [Concomitant]
     Active Substance: ALBENDAZOLE
  11. ASPIRIN. [Concomitant]
     Active Substance: ASPIRIN
  12. ZOCOR [Concomitant]
     Active Substance: SIMVASTATIN
  13. NITROSTAT [Concomitant]
     Active Substance: NITROGLYCERIN
  14. OMEPRAZOLE. [Concomitant]
     Active Substance: OMEPRAZOLE
  15. KIONEX [Concomitant]
     Active Substance: SODIUM POLYSTYRENE SULFONATE
  16. KETOCONAZOLE. [Concomitant]
     Active Substance: KETOCONAZOLE
  17. RANEXA [Concomitant]
     Active Substance: RANOLAZINE
  18. BUMETANIDE. [Concomitant]
     Active Substance: BUMETANIDE
  19. FENOFIBRATE. [Concomitant]
     Active Substance: FENOFIBRATE
  20. LEVOTHYROXINE SODIUM. [Concomitant]
     Active Substance: LEVOTHYROXINE SODIUM
  21. ALLOPURINOL. [Concomitant]
     Active Substance: ALLOPURINOL
  22. FERAHEME [Concomitant]
     Active Substance: FERUMOXYTOL NON-STOICHIOMETRIC MAGNETITE
  23. VELTASSA [Suspect]
     Active Substance: PATIROMER
     Indication: ESSENTIAL HYPERTENSION
     Route: 048
     Dates: start: 20160325
  24. ISOSORBIDE MONONITRATE. [Concomitant]
     Active Substance: ISOSORBIDE MONONITRATE
  25. VITAMIN B12 [Concomitant]
     Active Substance: CYANOCOBALAMIN
  26. PLAVIX [Concomitant]
     Active Substance: CLOPIDOGREL BISULFATE
  27. NOVOLIN [Concomitant]
     Active Substance: INSULIN HUMAN
     Dosage: 70/30
  28. CYCLOBENZAPRINE HYDROCHLORIDE. [Concomitant]
     Active Substance: CYCLOBENZAPRINE HYDROCHLORIDE
  29. CALCIUM CARBONATE. [Concomitant]
     Active Substance: CALCIUM CARBONATE
  30. HYDROXYZINE EMBONATE [Concomitant]
     Active Substance: HYDROXYZINE PAMOATE
  31. VELTASSA [Suspect]
     Active Substance: PATIROMER
     Indication: CHRONIC KIDNEY DISEASE
     Route: 048
     Dates: start: 20171116
  32. LISINOPRIL. [Concomitant]
     Active Substance: LISINOPRIL
  33. AMOXICILLIN. [Concomitant]
     Active Substance: AMOXICILLIN
  34. LOTRISONE [Concomitant]
     Active Substance: BETAMETHASONE DIPROPIONATE\CLOTRIMAZOLE
  35. NORTRIPTYLINE HYDROCHLORIDE. [Concomitant]
     Active Substance: NORTRIPTYLINE HYDROCHLORIDE
  36. COLCRYS [Concomitant]
     Active Substance: COLCHICINE
  37. FLUOROURACIL. [Concomitant]
     Active Substance: FLUOROURACIL
  38. HYDROXYZINE HYDROCHLORIDE. [Concomitant]
     Active Substance: HYDROXYZINE HYDROCHLORIDE

REACTIONS (7)
  - Groin infection [Unknown]
  - Vomiting [Unknown]
  - Blood glucose decreased [Unknown]
  - Inappropriate schedule of product administration [Unknown]
  - Constipation [Not Recovered/Not Resolved]
  - Product dose omission [Unknown]
  - Malaise [Unknown]

NARRATIVE: CASE EVENT DATE: 20160324
